FAERS Safety Report 9769521 (Version 2)
Quarter: 2014Q2

REPORT INFORMATION
  Report Type: Report from Study
  Country: CA (occurrence: CA)
  Receive Date: 20131218
  Receipt Date: 20140626
  Transmission Date: 20141212
  Serious: Yes (Other)
  Sender: FDA-Public Use
  Company Number: CA-JNJFOC-20131207003

PATIENT
  Age: 15 Year
  Sex: Male
  Weight: 53.9 kg

DRUGS (2)
  1. REMICADE [Suspect]
     Indication: CROHN^S DISEASE
     Route: 042
     Dates: start: 20131209
  2. REMICADE [Suspect]
     Indication: CROHN^S DISEASE
     Route: 042
     Dates: start: 20120609

REACTIONS (7)
  - Gastrointestinal stoma complication [Unknown]
  - Decreased appetite [Unknown]
  - Pallor [Unknown]
  - Malaise [Unknown]
  - Fatigue [Unknown]
  - Pyrexia [Unknown]
  - Headache [Unknown]
